FAERS Safety Report 9839828 (Version 3)
Quarter: 2014Q1

REPORT INFORMATION
  Report Type: Report from Study
  Country: DE (occurrence: DE)
  Receive Date: 20140124
  Receipt Date: 20140327
  Transmission Date: 20141002
  Serious: Yes (Hospitalization)
  Sender: FDA-Public Use
  Company Number: DE-BRISTOL-MYERS SQUIBB COMPANY-19475425

PATIENT
  Age: 60 Year
  Sex: Female
  Weight: 78 kg

DRUGS (9)
  1. ABATACEPT [Suspect]
     Indication: RHEUMATOID ARTHRITIS
     Route: 042
     Dates: start: 20120724
  2. METHYLPREDNISOLONE [Suspect]
     Indication: RHEUMATOID ARTHRITIS
     Route: 048
     Dates: start: 199804
  3. SULPHASALAZINE [Suspect]
  4. ALENDRONIC ACID [Concomitant]
     Indication: OSTEOPOROSIS
     Route: 048
     Dates: start: 20100602
  5. BISOPROLOL [Concomitant]
  6. TOREM [Concomitant]
  7. ACETYLSALICYLIC ACID [Concomitant]
  8. TRAMAL [Concomitant]
  9. TILIDINE [Concomitant]

REACTIONS (4)
  - Molluscum contagiosum [Recovered/Resolved]
  - Cataract [Unknown]
  - Blepharochalasis [Unknown]
  - Eyelid ptosis [Unknown]
